FAERS Safety Report 6022813-5 (Version None)
Quarter: 2008Q4

REPORT INFORMATION
  Report Type: 
  Country: None (occurrence: None)
  Receive Date: 20081223
  Receipt Date: 20081218
  Transmission Date: 20090506
  Serious: Yes (Death, Hospitalization)
  Sender: FDA-Public Use
  Company Number: 001054

PATIENT
  Age: 74 Year
  Sex: Male
  Weight: 49 kg

DRUGS (8)
  1. PLETAL [Suspect]
     Indication: CEREBRAL INFARCTION
     Dates: start: 20050806, end: 20081005
  2. PRAVASTATIN SODIUM [Suspect]
     Indication: HYPERLIPIDAEMIA
     Dosage: 10 MG, DAILY DOSE
     Route: 048
     Dates: start: 20060908
  3. AMARYL [Suspect]
     Indication: TYPE 2 DIABETES MELLITUS
     Dosage: 1 MG, DAILY DOSE; ORAL
     Route: 048
     Dates: start: 20070309
  4. AMARYL [Suspect]
     Indication: TYPE 2 DIABETES MELLITUS
     Dosage: 1 MG, DAILY DOSE; ORAL
     Route: 048
     Dates: start: 20080613
  5. . [Concomitant]
  6. MAGNESIUM OXIDE (MAGNESIUM OXIDE) TABLET, 330 MG [Suspect]
     Indication: CONSTIPATION
     Dosage: 1320 MG, DAILY DOSE; ORAL
     Route: 048
     Dates: start: 20080314
  7. GLUFAST (MITIGLINIDE CALCIUM HYDRATE) [Concomitant]
  8. KETOPROFEN [Concomitant]

REACTIONS (13)
  - BLOOD GLUCOSE INCREASED [None]
  - BLOOD PRESSURE DECREASED [None]
  - BLOOD PRESSURE SYSTOLIC DECREASED [None]
  - BODY TEMPERATURE DECREASED [None]
  - BRAIN OEDEMA [None]
  - DIABETES MELLITUS INADEQUATE CONTROL [None]
  - DYSARTHRIA [None]
  - GASTRITIS [None]
  - LIVER ABSCESS [None]
  - PANCREATIC CARCINOMA [None]
  - PANCREATIC PSEUDOCYST [None]
  - PANCREATITIS [None]
  - SEPSIS [None]
